FAERS Safety Report 19947663 (Version 2)
Quarter: 2021Q4

REPORT INFORMATION
  Report Type: Spontaneous
  Country: US (occurrence: US)
  Receive Date: 20211013
  Receipt Date: 20211111
  Transmission Date: 20220303
  Serious: No
  Sender: FDA-Public Use
  Company Number: US-BEH-2021136785

PATIENT
  Age: 56 Year
  Sex: Female

DRUGS (3)
  1. PRIVIGEN [Suspect]
     Active Substance: HUMAN IMMUNOGLOBULIN G
     Indication: Pemphigoid
     Dosage: 30 GRAM, QD FOR 5 DAYS EVERY 4 WEEKS
     Route: 042
     Dates: start: 20201002
  2. PRIVIGEN [Suspect]
     Active Substance: HUMAN IMMUNOGLOBULIN G
     Indication: End stage renal disease
  3. PRIVIGEN [Suspect]
     Active Substance: HUMAN IMMUNOGLOBULIN G
     Indication: Skin disorder

REACTIONS (4)
  - Weight abnormal [Unknown]
  - Infection [Unknown]
  - No adverse event [Unknown]
  - Off label use [Unknown]
